FAERS Safety Report 14924164 (Version 1)
Quarter: 2018Q2

REPORT INFORMATION
  Report Type: Report from Study
  Country: US (occurrence: US)
  Receive Date: 20180522
  Receipt Date: 20180522
  Transmission Date: 20180711
  Serious: No
  Sender: FDA-Public Use
  Company Number: PHEH2018US018956

PATIENT
  Sex: Female

DRUGS (1)
  1. AFINITOR [Suspect]
     Active Substance: EVEROLIMUS
     Indication: ASTROCYTOMA, LOW GRADE
     Dosage: 2.5 MG, QD
     Route: 048
     Dates: start: 20180415

REACTIONS (7)
  - Vomiting [Unknown]
  - Skin discolouration [Unknown]
  - Fall [Unknown]
  - Infantile spitting up [Unknown]
  - Malaise [Unknown]
  - Syncope [Unknown]
  - Abdominal pain [Unknown]
